FAERS Safety Report 5522146-7 (Version None)
Quarter: 2007Q4

REPORT INFORMATION
  Report Type: 
  Country: None (occurrence: None)
  Receive Date: 20071120
  Receipt Date: 20071114
  Transmission Date: 20080405
  Serious: Yes (Hospitalization, Other)
  Sender: FDA-Public Use
  Company Number: JP-ELI_LILLY_AND_COMPANY-JP200610001471

PATIENT
  Sex: Female
  Weight: 37 kg

DRUGS (10)
  1. RALOXIFENE HYDROCHLORIDE [Suspect]
     Indication: OSTEOPOROSIS POSTMENOPAUSAL
     Dosage: 60 MG, DAILY (1/D)
     Route: 048
     Dates: start: 20050526, end: 20070127
  2. DEPAS [Concomitant]
     Indication: COMPRESSION FRACTURE
     Dosage: 1.5 MG, DAILY (1/D)
     Route: 048
     Dates: start: 20050613, end: 20061002
  3. NEUROTROPIN [Concomitant]
     Indication: COMPRESSION FRACTURE
     Dosage: 6 D/F, DAILY (1/D)
     Route: 048
     Dates: start: 20050613, end: 20060123
  4. NEUROTROPIN [Concomitant]
     Dosage: 4 D/F, DAILY (1/D)
     Route: 048
     Dates: start: 20060313, end: 20070127
  5. MUCOSTA [Concomitant]
     Indication: COMPRESSION FRACTURE
     Dosage: 300 MG, DAILY (1/D)
     Route: 048
     Dates: start: 20050613, end: 20060123
  6. MUCOSTA [Concomitant]
     Dosage: 200 MG, DAILY (1/D)
     Route: 048
     Dates: start: 20060313, end: 20070127
  7. HALCION                                 /NET/ [Concomitant]
     Indication: INSOMNIA
     Dosage: 0.25 MG, DAILY (1/D)
     Route: 048
     Dates: start: 20050613, end: 20070127
  8. MAGNESIUM OXIDE [Concomitant]
     Indication: CONSTIPATION
     Dosage: 1.5 G, DAILY (1/D)
     Route: 048
     Dates: start: 20050613, end: 20050711
  9. PANTOSIN [Concomitant]
     Indication: CONSTIPATION
     Dosage: 1.5 G, UNK
     Route: 048
     Dates: start: 20050613, end: 20050711
  10. ROCALTROL [Concomitant]
     Indication: OSTEOPOROSIS
     Dosage: 1 UG, DAILY (1/D)
     Route: 048
     Dates: start: 20061002, end: 20070127

REACTIONS (3)
  - KYPHOSIS [None]
  - PSEUDARTHROSIS [None]
  - SPINAL COMPRESSION FRACTURE [None]
